FAERS Safety Report 6530481-9 (Version None)
Quarter: 2010Q1

REPORT INFORMATION
  Report Type: 
  Country: None (occurrence: None)
  Receive Date: 20100106
  Receipt Date: 20100106
  Transmission Date: 20100710
  Serious: No
  Sender: FDA-Public Use
  Company Number: None

PATIENT
  Sex: Female
  Weight: 52.1637 kg

DRUGS (2)
  1. LANSOPRAZOLE [Suspect]
     Indication: GASTROOESOPHAGEAL REFLUX DISEASE
     Dosage: 30MG TWICE DAILY ORAL, DEC 25TH - PRESENT
     Route: 048
  2. LANSOPRAZOLE [Suspect]
     Indication: PEPTIC ULCER
     Dosage: 30MG TWICE DAILY ORAL, DEC 25TH - PRESENT
     Route: 048

REACTIONS (3)
  - ABDOMINAL DISTENSION [None]
  - ERUCTATION [None]
  - PRODUCT SUBSTITUTION ISSUE [None]
